FAERS Safety Report 15717769 (Version 4)
Quarter: 2024Q2

REPORT INFORMATION
  Report Type: Spontaneous
  Country: US (occurrence: US)
  Receive Date: 20181213
  Receipt Date: 20240613
  Transmission Date: 20240715
  Serious: No
  Sender: FDA-Public Use
  Company Number: US-PFIZER INC-2018512663

PATIENT
  Age: 76 Year
  Sex: Female

DRUGS (2)
  1. IBRANCE [Suspect]
     Active Substance: PALBOCICLIB
     Indication: Breast cancer metastatic
     Dosage: 75 MG, CYCLIC (BY MOUTH DAILY FOR 21 CONSECUTIVE DAYS, THEN 7 DAYS OFF. REPEAT CYCLE EVERY 28 DAYS)
     Route: 048
     Dates: start: 20231214
  2. IBRANCE [Suspect]
     Active Substance: PALBOCICLIB
     Dosage: 75 MG, CYCLIC (BY MOUTH DAILY FOR 21 CONSECUTIVE DAYS, THEN 7 DAYS OFF. REPEAT CYCLE EVERY 28 DAYS)
     Route: 048
     Dates: start: 20240607

REACTIONS (1)
  - Drug hypersensitivity [Unknown]
